FAERS Safety Report 14204560 (Version 1)
Quarter: 2017Q4

REPORT INFORMATION
  Report Type: Spontaneous
  Country: US (occurrence: None)
  Receive Date: 20171117
  Receipt Date: 20171117
  Transmission Date: 20180321
  Serious: Yes (Other)
  Sender: FDA-Public Use
  Company Number: None

PATIENT
  Age: 57 Year
  Sex: Female

DRUGS (1)
  1. CIPROFLOXACIN. [Suspect]
     Active Substance: CIPROFLOXACIN
     Dates: start: 20150309, end: 20150311

REACTIONS (2)
  - Hepatotoxicity [None]
  - Drug-induced liver injury [None]

NARRATIVE: CASE EVENT DATE: 20150316
